FAERS Safety Report 9193973 (Version 1)
Quarter: 2013Q1

REPORT INFORMATION
  Report Type: Spontaneous
  Country: IT (occurrence: IT)
  Receive Date: 20130327
  Receipt Date: 20130327
  Transmission Date: 20140127
  Serious: Yes (Hospitalization, Other)
  Sender: FDA-Public Use
  Company Number: IT-PFIZER INC-2013097260

PATIENT
  Age: 75 Year
  Sex: Male

DRUGS (6)
  1. CARDURA [Suspect]
     Indication: HYPERTENSION
     Dosage: 2 MG, DAILY
     Route: 048
     Dates: start: 20130116, end: 20130126
  2. KARVEA [Suspect]
     Indication: CARDIAC FAILURE
     Dosage: 150 MG, DAILY
     Route: 048
     Dates: start: 20130125, end: 20130126
  3. LORAZEPAM [Concomitant]
     Dosage: UNK
  4. AVODART [Concomitant]
     Dosage: UNK
  5. CARDIOASPIRIN [Concomitant]
     Dosage: UNK
  6. DEPAROX [Concomitant]
     Dosage: UNK

REACTIONS (3)
  - Cardiac failure [Unknown]
  - Syncope [Recovering/Resolving]
  - Drug administration error [Recovering/Resolving]
